FAERS Safety Report 7079714-3 (Version None)
Quarter: 2010Q4

REPORT INFORMATION
  Report Type: 
  Country: None (occurrence: None)
  Receive Date: 20101102
  Receipt Date: 20101027
  Transmission Date: 20110411
  Serious: Yes (Death, Other)
  Sender: FDA-Public Use
  Company Number: PHHY2010MX40771

PATIENT
  Age: 96 Year
  Sex: Female

DRUGS (1)
  1. ACLASTA [Suspect]
     Indication: OSTEOPOROSIS
     Dosage: 5 MG/100 ML, YEARLY
     Dates: start: 20090215

REACTIONS (4)
  - CARDIOPULMONARY FAILURE [None]
  - FALL [None]
  - GAIT DISTURBANCE [None]
  - PNEUMONIA [None]
